FAERS Safety Report 5391592-7 (Version None)
Quarter: 2007Q3

REPORT INFORMATION
  Report Type: 
  Country: None (occurrence: None)
  Receive Date: 20070717
  Receipt Date: 20070702
  Transmission Date: 20080115
  Serious: Yes (Other)
  Sender: FDA-Public Use
  Company Number: 100#08#2007-02480

PATIENT
  Age: 33 Year
  Sex: Female

DRUGS (6)
  1. HYDROXYCARBAMIDE  (HYDROXYCARBAMIDE) (HYDROXYCARBAMIDE) [Suspect]
     Indication: ESSENTIAL THROMBOCYTHAEMIA
     Dosage: 3 G/DAY
  2. ANAGRELIDE (ANAGRELIDE) (ANAGRELIDE) [Concomitant]
  3. BUSCOPAN (HYOSCINE BUTYLBROMIDE) (BUSCOPAN) [Concomitant]
  4. ALLOPURINOL (ALLOPURINOL) (ALLOPURINOL) [Concomitant]
  5. OMEPRAZOLE [Concomitant]
  6. SANGOBION (SANGOBION) (SANGOBION) [Concomitant]

REACTIONS (5)
  - DIZZINESS [None]
  - MUSCULAR WEAKNESS [None]
  - NAIL PIGMENTATION [None]
  - PANCYTOPENIA [None]
  - VISION BLURRED [None]
